FAERS Safety Report 12483450 (Version 1)
Quarter: 2016Q2

REPORT INFORMATION
  Report Type: Report from Study
  Country: US (occurrence: US)
  Receive Date: 20160621
  Receipt Date: 20160621
  Transmission Date: 20160815
  Serious: Yes (Hospitalization, Other)
  Sender: FDA-Public Use
  Company Number: US-GILEAD-2015-0175101

PATIENT
  Age: 78 Year
  Sex: Female

DRUGS (12)
  1. SPIRONOLACTONE. [Concomitant]
     Active Substance: SPIRONOLACTONE
     Dates: start: 20160420
  2. CALCIUM [Concomitant]
     Active Substance: CALCIUM
     Dates: start: 20160420
  3. WARFARIN [Concomitant]
     Active Substance: WARFARIN
     Dates: start: 20160420
  4. LISINOPRIL. [Concomitant]
     Active Substance: LISINOPRIL
     Dates: start: 20160420
  5. BUMETANIDE. [Concomitant]
     Active Substance: BUMETANIDE
     Dates: start: 20160420
  6. AMBRISENTAN [Suspect]
     Active Substance: AMBRISENTAN
     Indication: PULMONARY HYPERTENSION
     Dosage: 5 MG, QD
     Route: 065
     Dates: start: 20140719
  7. TRAZODONE [Concomitant]
     Active Substance: TRAZODONE HYDROCHLORIDE
     Dates: start: 20160420
  8. ADCIRCA [Concomitant]
     Active Substance: TADALAFIL
     Dates: start: 20160420
  9. ATENOLOL. [Concomitant]
     Active Substance: ATENOLOL
     Dates: start: 20160420
  10. MELATONIN [Concomitant]
     Active Substance: MELATONIN
     Dates: start: 20160420
  11. LANTUS [Concomitant]
     Active Substance: INSULIN GLARGINE
     Dates: start: 20160420
  12. HYDROXYZINE PAM [Concomitant]
     Active Substance: HYDROXYZINE PAMOATE
     Dates: start: 20160420

REACTIONS (2)
  - Cardiac failure congestive [Recovered/Resolved]
  - Drug dose omission [Unknown]

NARRATIVE: CASE EVENT DATE: 2015
